FAERS Safety Report 14632200 (Version 1)
Quarter: 2018Q1

REPORT INFORMATION
  Report Type: Spontaneous
  Country: FR (occurrence: FR)
  Receive Date: 20180313
  Receipt Date: 20180313
  Transmission Date: 20180509
  Serious: Yes (Other)
  Sender: FDA-Public Use
  Company Number: FR-TEVA-2018-FR-850851

PATIENT
  Age: 71 Year
  Sex: Male
  Weight: 70 kg

DRUGS (4)
  1. PARACETAMOL [Concomitant]
     Active Substance: ACETAMINOPHEN
     Indication: INFLUENZA
     Dosage: 4 DOSAGE FORMS DAILY;
     Route: 048
     Dates: start: 20171227, end: 20180117
  2. IBUPROFEN. [Concomitant]
     Active Substance: IBUPROFEN
     Indication: INFLUENZA
     Dosage: 1200 MILLIGRAM DAILY;
     Route: 048
     Dates: start: 20171227, end: 20180117
  3. CHONDROSTEO [Concomitant]
     Indication: OSTEOARTHRITIS
     Dosage: 3 DOSAGE FORMS DAILY;
  4. LEVOFLOXACINE TEVA 500 MG [Suspect]
     Active Substance: LEVOFLOXACIN
     Indication: PROSTATITIS
     Dosage: 1 DOSAGE FORMS DAILY;
     Route: 048
     Dates: start: 20180105, end: 20180108

REACTIONS (7)
  - Transaminases increased [Recovered/Resolved]
  - Myalgia [Recovered/Resolved]
  - Muscle spasms [Not Recovered/Not Resolved]
  - Hepatocellular injury [Recovering/Resolving]
  - Eye pain [Not Recovered/Not Resolved]
  - Ophthalmoplegia [Recovering/Resolving]
  - Accommodation disorder [Not Recovered/Not Resolved]

NARRATIVE: CASE EVENT DATE: 201801
